FAERS Safety Report 9190925 (Version 3)
Quarter: 2013Q3

REPORT INFORMATION
  Report Type: Spontaneous
  Country: JP (occurrence: JP)
  Receive Date: 20130326
  Receipt Date: 20130816
  Transmission Date: 20140515
  Serious: Yes (Life-Threatening)
  Sender: FDA-Public Use
  Company Number: JP-GLAXOSMITHKLINE-B0878018A

PATIENT
  Age: 64 Year
  Sex: Male

DRUGS (5)
  1. OMEGA-3-ACID ETHYL ESTERS [Suspect]
     Indication: HYPERLIPIDAEMIA
     Dosage: 2000MG PER DAY
     Route: 048
     Dates: start: 20130118, end: 20130308
  2. UNISIA [Concomitant]
     Dosage: 1TAB PER DAY
     Route: 048
     Dates: start: 20110516
  3. BASEN [Concomitant]
     Dosage: .9MG PER DAY
     Route: 048
     Dates: start: 20100910
  4. ARTIST [Concomitant]
     Dosage: 10MG PER DAY
     Route: 048
     Dates: start: 20101126
  5. CARDENALIN [Concomitant]
     Dosage: 1MG PER DAY
     Route: 048
     Dates: start: 20111201

REACTIONS (2)
  - Blood creatine phosphokinase increased [Recovering/Resolving]
  - Hypothyroidism [Not Recovered/Not Resolved]
